FAERS Safety Report 8119989-2 (Version None)
Quarter: 2012Q1

REPORT INFORMATION
  Report Type: 
  Country: None (occurrence: None)
  Receive Date: 20120207
  Receipt Date: 20120127
  Transmission Date: 20120608
  Serious: Yes (Life-Threatening, Hospitalization)
  Sender: FDA-Public Use
  Company Number: GB-NOVOPROD-343091

PATIENT
  Age: 42 Year
  Sex: Female
  Weight: 94.1 kg

DRUGS (12)
  1. MEBEVERINE [Concomitant]
     Dosage: 1 TAB, TID
  2. RANITIDINE [Suspect]
     Dosage: 150 UNK, UNK
  3. METFORMIN HCL [Concomitant]
     Dosage: 1000 MG, QD
  4. GLIMEPIRID [Concomitant]
     Dosage: 2 MG, QD
  5. AMITRIPTYLINE HCL [Concomitant]
     Dosage: 50 UNK, UNK
  6. FOLIC ACID [Concomitant]
     Dosage: 5 MG, UNK
  7. VICTOZA [Suspect]
     Indication: TYPE 2 DIABETES MELLITUS
     Dosage: 1.2 MG, QD
     Dates: start: 20111122, end: 20111226
  8. ETORICOXIB [Concomitant]
     Dosage: 1 TAB, QD
  9. ACETAMINOPHEN AND CODEINE PHOSPHATE [Concomitant]
  10. METHOTREXATE [Concomitant]
     Dosage: 20 MG, UNK
  11. DIHYDROCODEINE BITARTRATE INJ [Concomitant]
  12. RAMIPRIL [Concomitant]
     Dosage: 10 MG, QD

REACTIONS (1)
  - PANCREATITIS ACUTE [None]
